FAERS Safety Report 8178767-9 (Version None)
Quarter: 2012Q1

REPORT INFORMATION
  Report Type: 
  Country: None (occurrence: None)
  Receive Date: 20120301
  Receipt Date: 20120301
  Transmission Date: 20120608
  Serious: Yes (Death, Life-Threatening, Hospitalization, Other)
  Sender: FDA-Public Use
  Company Number: None

PATIENT
  Age: 50 Year
  Sex: Female
  Weight: 74.842 kg

DRUGS (2)
  1. EFUDEX [Concomitant]
     Indication: SKIN DISORDER
     Dosage: APPLY TO FACE /ARMS
     Route: 061
     Dates: start: 20070307, end: 20070601
  2. ALDARA [Suspect]
     Indication: SKIN CANCER
     Dosage: APPLY TO FACE
     Route: 061
     Dates: start: 20070307, end: 20110101

REACTIONS (31)
  - TREMOR [None]
  - THYROID DISORDER [None]
  - SKIN EXFOLIATION [None]
  - QUALITY OF LIFE DECREASED [None]
  - MALAISE [None]
  - IMMUNE SYSTEM DISORDER [None]
  - NERVE INJURY [None]
  - MYALGIA [None]
  - MUSCLE SPASMS [None]
  - CHEST PAIN [None]
  - BRAIN INJURY [None]
  - RASH [None]
  - CONFUSIONAL STATE [None]
  - INFLUENZA [None]
  - PAIN [None]
  - DYSPNOEA [None]
  - HEADACHE [None]
  - DIZZINESS [None]
  - INFECTION [None]
  - SKIN DISORDER [None]
  - AMNESIA [None]
  - SKIN IRRITATION [None]
  - SCAR [None]
  - BURNS THIRD DEGREE [None]
  - IMPAIRED HEALING [None]
  - INFLUENZA LIKE ILLNESS [None]
  - OPEN WOUND [None]
  - SKIN CANCER [None]
  - HYPOAESTHESIA [None]
  - SCAB [None]
  - VISUAL IMPAIRMENT [None]
